FAERS Safety Report 9411859 (Version 3)
Quarter: 2013Q4

REPORT INFORMATION
  Report Type: Report from Study
  Country: CA (occurrence: CA)
  Receive Date: 20130722
  Receipt Date: 20131105
  Transmission Date: 20140711
  Serious: Yes (Hospitalization, Other)
  Sender: FDA-Public Use
  Company Number: PHHY2013CA077248

PATIENT
  Sex: Male

DRUGS (6)
  1. CLOZARIL [Suspect]
     Indication: SCHIZOPHRENIA
     Dosage: UNK UKN, UNK
     Dates: start: 20090629, end: 20130103
  2. CLOZARIL [Suspect]
     Dosage: UNK UKN, UNK
     Route: 048
     Dates: start: 20130626
  3. GRAVOL [Concomitant]
     Dosage: 25 MG, UNK
  4. DOCUSATE [Concomitant]
     Dosage: 100 MG BID
  5. METOPROLOL [Concomitant]
     Dosage: 25 MG, BID
  6. QUETIAPINE [Concomitant]
     Dosage: 100 MG, UNK

REACTIONS (4)
  - Multiple fractures [Recovering/Resolving]
  - Suicide attempt [Recovering/Resolving]
  - Hallucination, auditory [Recovering/Resolving]
  - Overdose [Recovering/Resolving]
